FAERS Safety Report 6659719-4 (Version None)
Quarter: 2010Q1

REPORT INFORMATION
  Report Type: 
  Country: None (occurrence: None)
  Receive Date: 20100326
  Receipt Date: 20100312
  Transmission Date: 20100710
  Serious: Yes (Life-Threatening)
  Sender: FDA-Public Use
  Company Number: 008971

PATIENT
  Age: 73 Year
  Sex: Male
  Weight: 52 kg

DRUGS (14)
  1. PLETAL [Suspect]
     Indication: THROMBOTIC CEREBRAL INFARCTION
     Dosage: 100 MG, BID ORAL
     Route: 048
     Dates: start: 20100210, end: 20100215
  2. RADICUT (EDARAVONE) [Concomitant]
  3. SEISHOKU (SODIUM CHLORIDE) [Concomitant]
  4. GLYCEOL (FRUCTOSE, GLYCEROL) [Concomitant]
  5. CRESTOR [Concomitant]
  6. NOVOLOG [Concomitant]
  7. NOVOLIN N [Concomitant]
  8. AMLODIN OD (AMLODIPINE BESILATE) [Concomitant]
  9. ALLOPURINOL [Concomitant]
  10. PERINDOPRIL ERBUMINE [Concomitant]
  11. DIOVAN [Concomitant]
  12. ARGATROBAN [Concomitant]
  13. VEEN-F (CALCIUM CHLORIDE ANHYDROUS, MAGNESIUM CHLORIDE ANHYDROUS, POTA [Concomitant]
  14. SOILTA-T1 INJECTION (GLUCOSE, SODIUM CHLORIDE, SODIUM LACTATE) [Concomitant]

REACTIONS (4)
  - ALTERED STATE OF CONSCIOUSNESS [None]
  - HAEMORRHAGIC CEREBRAL INFARCTION [None]
  - LETHARGY [None]
  - THROMBOTIC CEREBRAL INFARCTION [None]
